FAERS Safety Report 7779774-8 (Version None)
Quarter: 2011Q3

REPORT INFORMATION
  Report Type: 
  Country: None (occurrence: None)
  Receive Date: 20110927
  Receipt Date: 20101207
  Transmission Date: 20111222
  Serious: No
  Sender: FDA-Public Use
  Company Number: US-ASTRAZENECA-2010SE57900

PATIENT
  Age: 79 Year
  Sex: Female

DRUGS (1)
  1. SEROQUEL [Suspect]
     Indication: SLEEP DISORDER
     Route: 048
     Dates: start: 20050101

REACTIONS (6)
  - LIMB OPERATION [None]
  - HEADACHE [None]
  - EYE IRRITATION [None]
  - IRON DEFICIENCY [None]
  - FIBROMYALGIA [None]
  - RASH PRURITIC [None]
